FAERS Safety Report 14688648 (Version 2)
Quarter: 2018Q2

REPORT INFORMATION
  Report Type: Report from Study
  Country: US (occurrence: US)
  Receive Date: 20180328
  Receipt Date: 20180402
  Transmission Date: 20180711
  Serious: Yes (Other)
  Sender: FDA-Public Use
  Company Number: US-PFIZER INC-2018124863

PATIENT
  Age: 43 Year
  Sex: Female

DRUGS (4)
  1. HUMIRA [Suspect]
     Active Substance: ADALIMUMAB
     Indication: CROHN^S DISEASE
     Dosage: UNK (1 IN 2 WK)
     Route: 058
     Dates: start: 201703
  2. LYRICA [Suspect]
     Active Substance: PREGABALIN
     Dosage: UNK
  3. MIRALAX [Concomitant]
     Active Substance: POLYETHYLENE GLYCOL 3350
     Dosage: UNK
  4. GABAPENTIN. [Suspect]
     Active Substance: GABAPENTIN
     Dosage: UNK

REACTIONS (20)
  - Cardiac flutter [Unknown]
  - Nausea [Unknown]
  - Limb mass [Not Recovered/Not Resolved]
  - Stress cardiomyopathy [Not Recovered/Not Resolved]
  - Headache [Unknown]
  - Thyroid mass [Not Recovered/Not Resolved]
  - Injury [Unknown]
  - Dizziness [Unknown]
  - Tremor [Unknown]
  - Muscle tightness [Not Recovered/Not Resolved]
  - Fall [Unknown]
  - Breast mass [Not Recovered/Not Resolved]
  - Vertebral column mass [Not Recovered/Not Resolved]
  - Drug hypersensitivity [Not Recovered/Not Resolved]
  - Anger [Recovered/Resolved]
  - Pulse abnormal [Unknown]
  - Crohn^s disease [Recovered/Resolved]
  - Pruritus [Recovered/Resolved]
  - Enostosis [Not Recovered/Not Resolved]
  - Breast pain [Not Recovered/Not Resolved]
